FAERS Safety Report 18726722 (Version 2)
Quarter: 2021Q1

REPORT INFORMATION
  Report Type: Report from Study
  Country: BG (occurrence: BG)
  Receive Date: 20210112
  Receipt Date: 20210208
  Transmission Date: 20210419
  Serious: No
  Sender: FDA-Public Use
  Company Number: BG-TOLMAR, INC.-20BG024570

PATIENT
  Age: 58 Year
  Sex: Male

DRUGS (5)
  1. OLMESTA PLUS [Concomitant]
     Indication: PRODUCT USED FOR UNKNOWN INDICATION
     Dosage: UNK
     Route: 065
  2. ELIGARD [Suspect]
     Active Substance: LEUPROLIDE ACETATE
     Indication: PROSTATE CANCER
     Dosage: 45 MG, Q 6 MONTH
     Route: 058
     Dates: start: 201811
  3. ELIGARD [Suspect]
     Active Substance: LEUPROLIDE ACETATE
     Dosage: 45 MG, Q 6 MONTH
     Route: 058
     Dates: start: 20201127
  4. BISOGAMMA [Concomitant]
     Active Substance: BISOPROLOL FUMARATE
     Indication: PRODUCT USED FOR UNKNOWN INDICATION
     Dosage: UNK
     Route: 065
  5. ANTIBIOTICS [Concomitant]
     Active Substance: UNSPECIFIED INGREDIENT
     Indication: PRODUCT USED FOR UNKNOWN INDICATION
     Dosage: UNK
     Route: 065

REACTIONS (12)
  - Testicular retraction [Unknown]
  - Bone pain [Not Recovered/Not Resolved]
  - Weight increased [Unknown]
  - Dry throat [Unknown]
  - Pollakiuria [Not Recovered/Not Resolved]
  - Hyperhidrosis [Unknown]
  - Nipple disorder [Unknown]
  - Hepatic enzyme increased [Unknown]
  - Hot flush [Unknown]
  - Injection site bruising [Not Recovered/Not Resolved]
  - Fatigue [Unknown]
  - Nipple pain [Unknown]

NARRATIVE: CASE EVENT DATE: 201811
